FAERS Safety Report 7649920-5 (Version None)
Quarter: 2011Q3

REPORT INFORMATION
  Report Type: 
  Country: None (occurrence: None)
  Receive Date: 20110802
  Receipt Date: 20110728
  Transmission Date: 20111222
  Serious: Yes (Death, Hospitalization)
  Sender: FDA-Public Use
  Company Number: US-PFIZER INC-2004071420

PATIENT
  Age: 17 Year
  Sex: Female

DRUGS (3)
  1. DEXTROMETHORPHAN AND DEXTROMETHORPHAN HYDROBROMIDE AND GUAIFENESIN [Suspect]
     Dosage: UNK
     Route: 048
  2. CYCLOBENZAPRINE [Suspect]
     Indication: COMPLETED SUICIDE
     Dosage: UNK
     Route: 048
  3. TESSALON [Suspect]
     Dosage: UNK
     Route: 048

REACTIONS (17)
  - LOSS OF CONSCIOUSNESS [None]
  - PCO2 DECREASED [None]
  - PO2 INCREASED [None]
  - ANURIA [None]
  - ASPARTATE AMINOTRANSFERASE INCREASED [None]
  - CARDIAC ARREST [None]
  - PULMONARY OEDEMA [None]
  - MULTIPLE DRUG OVERDOSE INTENTIONAL [None]
  - COMA [None]
  - HEPATIC HAEMORRHAGE [None]
  - COMPLETED SUICIDE [None]
  - CONVULSION [None]
  - ALANINE AMINOTRANSFERASE INCREASED [None]
  - BLOOD PH DECREASED [None]
  - VOMITING [None]
  - BRAIN DEATH [None]
  - BRAIN OEDEMA [None]
